FAERS Safety Report 6274074-X (Version None)
Quarter: 2009Q3

REPORT INFORMATION
  Report Type: 
  Country: None (occurrence: None)
  Receive Date: 20090716
  Receipt Date: 20090702
  Transmission Date: 20100115
  Serious: Yes (Hospitalization)
  Sender: FDA-Public Use
  Company Number: 8048552

PATIENT
  Age: 27 Year
  Sex: Male
  Weight: 58.5 kg

DRUGS (4)
  1. CDP870 [Suspect]
     Indication: CROHN'S DISEASE
     Dosage: 400 MG SC
     Route: 058
     Dates: start: 20090527
  2. PLACEBO [Suspect]
     Indication: CROHN'S DISEASE
     Dosage: 400 MG SC
     Route: 058
     Dates: start: 20090527
  3. ENTOCORT EC [Concomitant]
  4. IBUPROFEN [Concomitant]

REACTIONS (3)
  - ABSCESS [None]
  - BACK PAIN [None]
  - PYREXIA [None]
